FAERS Safety Report 16295101 (Version 1)
Quarter: 2019Q2

REPORT INFORMATION
  Report Type: Spontaneous
  Country: US (occurrence: US)
  Receive Date: 20190509
  Receipt Date: 20190509
  Transmission Date: 20190711
  Serious: No
  Sender: FDA-Public Use
  Company Number: US-ROCHE-2252624

PATIENT
  Sex: Male

DRUGS (2)
  1. ESBRIET [Suspect]
     Active Substance: PIRFENIDONE
     Indication: PRODUCT USED FOR UNKNOWN INDICATION
     Route: 065
     Dates: start: 201901
  2. ESBRIET [Suspect]
     Active Substance: PIRFENIDONE
     Dosage: STARTED TAKING ESBRIET 6 DAYS AGO
     Route: 065

REACTIONS (4)
  - Sneezing [Unknown]
  - Sinus congestion [Unknown]
  - Headache [Unknown]
  - Upper-airway cough syndrome [Unknown]
